FAERS Safety Report 12567524 (Version 1)
Quarter: 2016Q3

REPORT INFORMATION
  Report Type: Report from Study
  Country: RS (occurrence: RS)
  Receive Date: 20160718
  Receipt Date: 20160718
  Transmission Date: 20161109
  Serious: Yes (Death, Hospitalization)
  Sender: FDA-Public Use
  Company Number: RS-IPCA LABORATORIES LIMITED-IPC201607-000580

PATIENT

DRUGS (4)
  1. METFORMIN HYDROCHLORIDE. [Suspect]
     Active Substance: METFORMIN HYDROCHLORIDE
  2. AMLODIPINE BESILATE [Suspect]
     Active Substance: AMLODIPINE BESYLATE
  3. GLICLAZIDE [Suspect]
     Active Substance: GLICLAZIDE
  4. CILAZAPRIL [Suspect]
     Active Substance: CILAZAPRIL ANHYDROUS

REACTIONS (3)
  - Circulatory collapse [Fatal]
  - Toxicity to various agents [Fatal]
  - Cardiac failure [Fatal]
